FAERS Safety Report 13565395 (Version 1)
Quarter: 2017Q2

REPORT INFORMATION
  Report Type: Spontaneous
  Country: FR (occurrence: FR)
  Receive Date: 20170519
  Receipt Date: 20170519
  Transmission Date: 20170830
  Serious: Yes (Other)
  Sender: FDA-Public Use
  Company Number: PHHY2017FR071494

PATIENT
  Age: 26 Year
  Sex: Female

DRUGS (1)
  1. PACLITAXEL HEXAL [Suspect]
     Active Substance: PACLITAXEL
     Indication: BREAST CANCER METASTATIC
     Dosage: 80 MG/M2, QW
     Route: 065

REACTIONS (1)
  - Hepatitis acute [Unknown]
